FAERS Safety Report 25198051 (Version 1)
Quarter: 2025Q2

REPORT INFORMATION
  Report Type: Spontaneous
  Country: US (occurrence: None)
  Receive Date: 20250414
  Receipt Date: 20250414
  Transmission Date: 20250716
  Serious: Yes (Disabling)
  Sender: FDA-CTU
  Company Number: None

PATIENT
  Age: 72 Year
  Sex: Female
  Weight: 69.75 kg

DRUGS (4)
  1. LUMIFY [Suspect]
     Active Substance: BRIMONIDINE TARTRATE
     Indication: Eye disorder
     Dosage: FREQUENCY : AT BEDTIME;?OTHER ROUTE : ONE DROP EACH EYE AT BEDTIME;?
     Route: 050
     Dates: start: 20240213, end: 20250414
  2. FOLIC ACID [Concomitant]
     Active Substance: FOLIC ACID
  3. VisionMD [Concomitant]
  4. Hair Skin Nail gummies [Concomitant]

REACTIONS (2)
  - Vision blurred [None]
  - Vitreous floaters [None]

NARRATIVE: CASE EVENT DATE: 20250301
